FAERS Safety Report 16276160 (Version 1)
Quarter: 2019Q2

REPORT INFORMATION
  Report Type: Spontaneous
  Country: US (occurrence: US)
  Receive Date: 20190506
  Receipt Date: 20190506
  Transmission Date: 20190711
  Serious: No
  Sender: FDA-Public Use
  Company Number: US-SA-2019SA120139

PATIENT
  Sex: Male

DRUGS (1)
  1. PRALUENT [Suspect]
     Active Substance: ALIROCUMAB
     Route: 058

REACTIONS (7)
  - Influenza like illness [Unknown]
  - Somnolence [Unknown]
  - Myalgia [Unknown]
  - Nasal congestion [Unknown]
  - Head discomfort [Unknown]
  - Muscular weakness [Unknown]
  - Sinus disorder [Unknown]
